FAERS Safety Report 17888064 (Version 1)
Quarter: 2020Q2

REPORT INFORMATION
  Report Type: Spontaneous
  Country: CU (occurrence: CU)
  Receive Date: 20200612
  Receipt Date: 20200612
  Transmission Date: 20200714
  Serious: Yes (Hospitalization)
  Sender: FDA-Public Use
  Company Number: CU-ROCHE-2615790

PATIENT
  Sex: Male

DRUGS (2)
  1. KETOTIFEN [Concomitant]
     Active Substance: KETOTIFEN
     Indication: PREMEDICATION
  2. GAZYVA [Suspect]
     Active Substance: OBINUTUZUMAB
     Indication: PRODUCT USED FOR UNKNOWN INDICATION
     Route: 042

REACTIONS (8)
  - Anal incontinence [Unknown]
  - Hepatic function abnormal [Unknown]
  - Body temperature decreased [Unknown]
  - Tremor [Unknown]
  - Back pain [Unknown]
  - Heart rate increased [Recovered/Resolved]
  - Urinary incontinence [Unknown]
  - Hypotension [Recovered/Resolved]

NARRATIVE: CASE EVENT DATE: 20200602
